FAERS Safety Report 9038451 (Version 3)
Quarter: 2013Q3

REPORT INFORMATION
  Report Type: Report from Study
  Country: US (occurrence: US)
  Receive Date: 20130129
  Receipt Date: 20130802
  Transmission Date: 20140515
  Serious: Yes (Life-Threatening, Hospitalization)
  Sender: FDA-Public Use
  Company Number: US-US-EMD SERONO, INC.-7189645

PATIENT
  Age: 55 Year
  Sex: Female

DRUGS (8)
  1. REBIF [Suspect]
     Indication: MULTIPLE SCLEROSIS
     Route: 058
     Dates: start: 20121121
  2. REBIF [Suspect]
     Route: 058
  3. REBIF [Suspect]
     Route: 058
     Dates: end: 201301
  4. REBIF [Suspect]
     Route: 058
     Dates: start: 201301
  5. IBUPROFEN [Concomitant]
     Indication: PREMEDICATION
  6. TYLENOL                            /00020001/ [Concomitant]
     Indication: PREMEDICATION
  7. HYDROCHLOORTHIAZIDE [Concomitant]
     Indication: HYPERTENSION
     Dates: end: 2013
  8. QUINAPRIL                          /00810602/ [Concomitant]
     Indication: HYPERTENSION
     Dates: start: 2013

REACTIONS (2)
  - Acute myocardial infarction [Recovered/Resolved]
  - Headache [Not Recovered/Not Resolved]
